FAERS Safety Report 8842627 (Version 1)
Quarter: 2012Q4

REPORT INFORMATION
  Report Type: Report from Study
  Country: CA (occurrence: CA)
  Receive Date: 20121016
  Receipt Date: 20121016
  Transmission Date: 20130627
  Serious: Yes (Hospitalization)
  Sender: FDA-Public Use
  Company Number: CA-JNJFOC-20121004994

PATIENT
  Age: 52 Year
  Sex: Female
  Weight: 53 kg

DRUGS (7)
  1. REMICADE [Suspect]
     Indication: RHEUMATOID ARTHRITIS
     Route: 042
     Dates: start: 20120126
  2. REMICADE [Suspect]
     Indication: CROHN^S DISEASE
     Route: 042
     Dates: start: 20120126
  3. RANTIDINE [Concomitant]
     Route: 065
  4. IMURAN [Concomitant]
     Route: 065
  5. PANTOLOC [Concomitant]
     Route: 065
  6. VITAMIN B 12 [Concomitant]
     Route: 065
  7. SALOFALK [Concomitant]
     Route: 065

REACTIONS (1)
  - Obstruction [Recovering/Resolving]
